FAERS Safety Report 15903087 (Version 5)
Quarter: 2021Q2

REPORT INFORMATION
  Report Type: Report from Study
  Country: GB (occurrence: GB)
  Receive Date: 20190202
  Receipt Date: 20210621
  Transmission Date: 20210716
  Serious: Yes (Life-Threatening, Hospitalization, Disabling, Other)
  Sender: FDA-Public Use
  Company Number: GB-ACCORD-105396

PATIENT
  Age: 42 Year
  Sex: Female
  Weight: 98 kg

DRUGS (86)
  1. DOCETAXEL. [Suspect]
     Active Substance: DOCETAXEL
     Indication: BREAST CANCER METASTATIC
     Route: 042
     Dates: start: 20160718, end: 20160830
  2. MAGNASPARTATE [Concomitant]
     Indication: BLOOD MAGNESIUM DECREASED
     Dates: start: 20160908
  3. DIHYDROCODEINE [Concomitant]
     Active Substance: DIHYDROCODEINE
     Indication: PAIN
     Route: 048
     Dates: start: 20160908
  4. SALBUTAMOL [Concomitant]
     Active Substance: ALBUTEROL
     Indication: PNEUMONIA
  5. OXYCODONE [Concomitant]
     Active Substance: OXYCODONE
     Indication: PAIN
  6. DANAPAROID/DANAPAROID SODIUM [Concomitant]
  7. LEVOMEPROMAZINE [Concomitant]
     Active Substance: LEVOMEPROMAZINE
  8. ARGATROBAN. [Concomitant]
     Active Substance: ARGATROBAN
     Indication: COLITIS ISCHAEMIC
     Route: 065
  9. BISOPROLOL [Concomitant]
     Active Substance: BISOPROLOL
     Indication: ACUTE KIDNEY INJURY
     Route: 065
  10. BUSCOPAN [Concomitant]
     Active Substance: BUTYLSCOPOLAMINE BROMIDE
     Indication: COLITIS ISCHAEMIC
  11. EPOPROSTENOL/EPOPROSTENOL SODIUM [Concomitant]
     Active Substance: EPOPROSTENOL SODIUM
     Indication: ACUTE KIDNEY INJURY
     Route: 065
  12. METOCLOPRAMIDE. [Concomitant]
     Active Substance: METOCLOPRAMIDE
     Indication: COLITIS ISCHAEMIC
     Route: 065
  13. DOXYCYCLINE. [Concomitant]
     Active Substance: DOXYCYCLINE
  14. DOXYCYCLINE. [Suspect]
     Active Substance: DOXYCYCLINE
     Indication: RASH
     Route: 048
     Dates: start: 20160803, end: 20160821
  15. ASPIRIN. [Concomitant]
     Active Substance: ASPIRIN
     Indication: COLITIS ISCHAEMIC
     Route: 065
  16. BONJELA [Concomitant]
     Active Substance: CETALKONIUM CHLORIDE\CHOLINE SALICYLATE\MENTHOL
     Route: 065
  17. CIPROFLOXACIN. [Concomitant]
     Active Substance: CIPROFLOXACIN
     Indication: NEUTROPENIC SEPSIS
     Route: 065
  18. DOXYCYCLINE. [Suspect]
     Active Substance: DOXYCYCLINE
     Indication: PRODUCT USED FOR UNKNOWN INDICATION
     Route: 042
     Dates: start: 20160830
  19. DOXYCYCLINE. [Suspect]
     Active Substance: DOXYCYCLINE
     Indication: PRODUCT USED FOR UNKNOWN INDICATION
     Route: 042
     Dates: start: 20160718
  20. HERCEPTIN [Suspect]
     Active Substance: TRASTUZUMAB
     Indication: BREAST CANCER METASTATIC
     Dosage: 798MG LOADING THEN 609MG, INFUSION, SOLUTION
     Route: 042
     Dates: start: 20160718, end: 20160830
  21. CITALOPRAM [Concomitant]
     Active Substance: CITALOPRAM HYDROBROMIDE
     Indication: DEPRESSION
     Route: 048
     Dates: start: 20160921
  22. GLUCOGEL [Concomitant]
  23. ERDOSTEINE [Concomitant]
     Active Substance: ERDOSTEINE
     Indication: PNEUMONIA
     Route: 065
  24. FILGRASTIM [Concomitant]
     Active Substance: FILGRASTIM
     Indication: NEUTROPENIC SEPSIS
     Route: 065
  25. MAGNESIUM SULFATE. [Concomitant]
     Active Substance: MAGNESIUM SULFATE
     Indication: PRODUCT USED FOR UNKNOWN INDICATION
     Route: 065
  26. MIDAZOLAM. [Concomitant]
     Active Substance: MIDAZOLAM
     Indication: COLITIS ISCHAEMIC
     Route: 065
  27. CHLORHEXIDINE HYDROCHLORIDE/NEOMYCIN SULFATE [Concomitant]
     Active Substance: CHLORHEXIDINE HYDROCHLORIDE\NEOMYCIN SULFATE
     Indication: COLITIS ISCHAEMIC
     Route: 065
  28. TINZAPARIN/TINZAPARIN SODIUM [Concomitant]
     Active Substance: TINZAPARIN SODIUM
  29. PARACETAMOL [Concomitant]
     Active Substance: ACETAMINOPHEN
     Indication: PAIN
     Route: 048
     Dates: start: 20160908
  30. MAGNESIUM SULFATE. [Concomitant]
     Active Substance: MAGNESIUM SULFATE
  31. CALCIUM GLUCONATE. [Concomitant]
     Active Substance: CALCIUM GLUCONATE
     Indication: COLITIS ISCHAEMIC
  32. DALTEPARIN [Concomitant]
     Active Substance: DALTEPARIN
     Indication: ACUTE KIDNEY INJURY
     Route: 065
  33. HARTMANN^S SOLUTION [Concomitant]
     Active Substance: CALCIUM CHLORIDE\POTASSIUM CHLORIDE\SODIUM CHLORIDE\SODIUM LACTATE
     Route: 065
  34. PERTUZUMAB. [Suspect]
     Active Substance: PERTUZUMAB
     Indication: BREAST CANCER METASTATIC
     Dosage: 840MG FIRST DOSE THEN 420MG, DOSAGE FORM: INFUSION, SOLUTION
     Route: 042
     Dates: start: 20160718, end: 20160830
  35. TOLTERODINE/TOLTERODINE L?TARTRATE [Concomitant]
     Active Substance: TOLTERODINE TARTRATE
     Indication: ACUTE KIDNEY INJURY
  36. HYDROCORTISONE. [Concomitant]
     Active Substance: HYDROCORTISONE
     Indication: NEUTROPENIC SEPSIS
  37. NOREPINEPHRINE. [Concomitant]
     Active Substance: NOREPINEPHRINE
  38. POTASSIUM [Concomitant]
     Active Substance: POTASSIUM
  39. TAUROLOCK [Concomitant]
     Active Substance: TAUROLIDINE
  40. CHLORHEXIDINE [Concomitant]
     Active Substance: CHLORHEXIDINE
     Indication: COLITIS ISCHAEMIC
     Route: 065
  41. CHLORPHENAMINE/CHLORPHENAMINE MALEATE/CHLORPHENAMINE RESINATE/CHLORPHENAMINE TANNATE [Concomitant]
     Active Substance: CHLORPHENIRAMINE
     Indication: NEUTROPENIC SEPSIS
     Route: 065
  42. DEXTROSE. [Concomitant]
     Active Substance: DEXTROSE
     Indication: PRODUCT USED FOR UNKNOWN INDICATION
     Route: 065
  43. DIAZEPAM. [Concomitant]
     Active Substance: DIAZEPAM
     Indication: COLITIS ISCHAEMIC
     Route: 048
  44. ERDOTIN [Concomitant]
     Active Substance: ERDOSTEINE
     Indication: PNEUMONIA
     Route: 065
  45. METARAMINOL [Concomitant]
     Active Substance: METARAMINOL
     Indication: COLITIS ISCHAEMIC
     Route: 065
  46. CALCIUM CARBONATE. [Concomitant]
     Active Substance: CALCIUM CARBONATE
     Indication: ACUTE KIDNEY INJURY
     Route: 065
  47. SODIUM LACTATE. [Concomitant]
     Active Substance: SODIUM LACTATE
     Indication: PRODUCT USED FOR UNKNOWN INDICATION
     Route: 065
  48. TEICOPLANIN [Concomitant]
     Active Substance: TEICOPLANIN
     Indication: COLITIS ISCHAEMIC
     Route: 065
  49. HERCEPTIN [Suspect]
     Active Substance: TRASTUZUMAB
     Indication: BREAST CANCER METASTATIC
     Dosage: INFUSION, SOLUTION
     Route: 042
     Dates: start: 20160808, end: 20160808
  50. LETROZOLE. [Suspect]
     Active Substance: LETROZOLE
     Indication: PRODUCT USED FOR UNKNOWN INDICATION
     Route: 048
     Dates: start: 20170124
  51. FLUCLOXACILLIN [Concomitant]
     Active Substance: FLUCLOXACILLIN
  52. FUROSEMIDE. [Concomitant]
     Active Substance: FUROSEMIDE
     Indication: ACUTE KIDNEY INJURY
  53. FRAGMIN [Concomitant]
     Active Substance: DALTEPARIN SODIUM
     Indication: VOMITING
     Route: 065
  54. HEPARIN [Concomitant]
     Active Substance: HEPARIN SODIUM
     Indication: ACUTE KIDNEY INJURY
     Route: 065
  55. LANSOPRAZOLE. [Concomitant]
     Active Substance: LANSOPRAZOLE
     Route: 048
     Dates: start: 20160908
  56. DOCETAXEL. [Suspect]
     Active Substance: DOCETAXEL
     Indication: BREAST CANCER METASTATIC
     Route: 042
     Dates: start: 20160830
  57. DOXYCYCLINE. [Suspect]
     Active Substance: DOXYCYCLINE
     Indication: PRODUCT USED FOR UNKNOWN INDICATION
     Route: 042
     Dates: start: 20160708
  58. CLOPIDOGREL [Concomitant]
     Active Substance: CLOPIDOGREL BISULFATE
     Indication: PNEUMONIA
  59. LOPERAMIDE [Concomitant]
     Active Substance: LOPERAMIDE
     Indication: DIARRHOEA
     Dosage: UP TO 4 TIMES A DAY IF NEEDED FOR LOOSE
     Route: 048
     Dates: start: 20161230
  60. TRANEXAMIC ACID. [Concomitant]
     Active Substance: TRANEXAMIC ACID
  61. ALTEPLASE. [Concomitant]
     Active Substance: ALTEPLASE
     Indication: COLITIS ISCHAEMIC
  62. ERYTHROMYCIN. [Concomitant]
     Active Substance: ERYTHROMYCIN
     Indication: NEUTROPENIC SEPSIS
     Route: 065
  63. FLUCONAZOLE. [Concomitant]
     Active Substance: FLUCONAZOLE
     Indication: NEUTROPENIC SEPSIS
     Route: 065
  64. FONDAPARINUX/FONDAPARINUX SODIUM [Concomitant]
     Active Substance: FONDAPARINUX
     Indication: COLITIS ISCHAEMIC
     Route: 065
  65. GENTAMICIN. [Concomitant]
     Active Substance: GENTAMICIN
     Indication: PRODUCT USED FOR UNKNOWN INDICATION
     Route: 065
  66. METRONIDAZOLE. [Concomitant]
     Active Substance: METRONIDAZOLE
     Indication: COLITIS ISCHAEMIC
     Route: 065
  67. NOREPINEPHRINE. [Concomitant]
     Active Substance: NOREPINEPHRINE
     Indication: PRODUCT USED FOR UNKNOWN INDICATION
     Route: 065
  68. RAMIPRIL. [Concomitant]
     Active Substance: RAMIPRIL
     Indication: ACUTE KIDNEY INJURY
     Route: 065
  69. SODIUM CITRATE. [Concomitant]
     Active Substance: SODIUM CITRATE
     Indication: PRODUCT USED FOR UNKNOWN INDICATION
     Route: 065
  70. TAUROLIDINE/TAUROLIDINE CITRATE [Concomitant]
     Indication: PRODUCT USED FOR UNKNOWN INDICATION
     Route: 065
  71. TAZOCIN [Concomitant]
     Active Substance: PIPERACILLIN SODIUM\TAZOBACTAM SODIUM
     Indication: NEUTROPENIC SEPSIS
     Route: 065
  72. HERCEPTIN [Suspect]
     Active Substance: TRASTUZUMAB
     Indication: BREAST CANCER METASTATIC
     Dosage: INFUSION, SOLUTION
     Route: 042
     Dates: start: 20160830, end: 20160830
  73. ONDANSETRON [Concomitant]
     Active Substance: ONDANSETRON
     Indication: NAUSEA
     Route: 048
     Dates: start: 20160908
  74. CYCLIZINE [Concomitant]
     Active Substance: CYCLIZINE
     Indication: NAUSEA
     Dosage: AS NEEDED
     Route: 048
     Dates: start: 20160908
  75. MEROPENEM. [Concomitant]
     Active Substance: MEROPENEM
  76. CODEINE [Concomitant]
     Active Substance: CODEINE
  77. MORPHINE [Concomitant]
     Active Substance: MORPHINE
  78. GLYCERYL TRINITRATE [Concomitant]
     Active Substance: NITROGLYCERIN
     Dosage: GTN
  79. ZOPICLONE [Concomitant]
     Active Substance: ZOPICLONE
  80. ALFENTANIL. [Concomitant]
     Active Substance: ALFENTANIL
  81. CALCIUM CHLORIDE DIHYDRATE [Concomitant]
     Active Substance: CALCIUM CHLORIDE
     Indication: PRODUCT USED FOR UNKNOWN INDICATION
     Route: 065
  82. GLYCERYL TRINITRATE [Concomitant]
     Active Substance: NITROGLYCERIN
     Indication: PRODUCT USED FOR UNKNOWN INDICATION
     Route: 065
  83. OMEPRAZOLE. [Concomitant]
     Active Substance: OMEPRAZOLE
     Indication: COLITIS ISCHAEMIC
     Route: 065
  84. ORAMORPH [Concomitant]
     Active Substance: MORPHINE SULFATE
     Indication: PRODUCT USED FOR UNKNOWN INDICATION
  85. PROPOFOL. [Concomitant]
     Active Substance: PROPOFOL
     Indication: COLITIS ISCHAEMIC
     Route: 065
  86. LYPRESSIN [Concomitant]
     Active Substance: LYPRESSIN
     Indication: NEUTROPENIC SEPSIS
     Route: 065

REACTIONS (10)
  - Abdominal pain [Recovered/Resolved with Sequelae]
  - Neutropenic sepsis [Recovered/Resolved]
  - Diarrhoea [Recovering/Resolving]
  - Peritonitis [Recovering/Resolving]
  - Pneumonia [Recovered/Resolved]
  - Vomiting [Recovered/Resolved with Sequelae]
  - Perforation [Recovering/Resolving]
  - Colitis [Recovered/Resolved]
  - Colitis ischaemic [Recovered/Resolved]
  - Acute kidney injury [Recovered/Resolved]

NARRATIVE: CASE EVENT DATE: 20160907
